FAERS Safety Report 8621927-0 (Version None)
Quarter: 2012Q3

REPORT INFORMATION
  Report Type: 
  Country: None (occurrence: None)
  Receive Date: 20120822
  Receipt Date: 20120822
  Transmission Date: 20120928
  Serious: Yes (Life-Threatening)
  Sender: FDA-Public Use
  Company Number: None

PATIENT
  Age: 61 Year
  Sex: Male
  Weight: 61.2356 kg

DRUGS (3)
  1. INCIVEK [Suspect]
     Indication: HEPATITIS C
  2. RIBASPHERE [Suspect]
  3. PEGASYS [Suspect]

REACTIONS (8)
  - DIZZINESS [None]
  - DISORIENTATION [None]
  - INCOHERENT [None]
  - HEADACHE [None]
  - NO THERAPEUTIC RESPONSE [None]
  - RASH [None]
  - CHILLS [None]
  - FEELING JITTERY [None]
